FAERS Safety Report 8285800-2 (Version None)
Quarter: 2012Q2

REPORT INFORMATION
  Report Type: 
  Country: None (occurrence: None)
  Receive Date: 20120413
  Receipt Date: 20120403
  Transmission Date: 20120825
  Serious: Yes (Hospitalization, Other)
  Sender: FDA-Public Use
  Company Number: ES-ELI_LILLY_AND_COMPANY-ES201204002268

PATIENT
  Sex: Male

DRUGS (2)
  1. FORTEO [Suspect]
     Dosage: UNK, UNKNOWN
     Route: 065
     Dates: start: 20111020
  2. FORTEO [Suspect]
     Dosage: UNK, UNKNOWN
     Route: 065

REACTIONS (2)
  - PNEUMONIA [None]
  - ARRHYTHMIA [None]
